FAERS Safety Report 23278718 (Version 1)
Quarter: 2023Q4

REPORT INFORMATION
  Report Type: Report from Study
  Country: US (occurrence: US)
  Receive Date: 20231208
  Receipt Date: 20231208
  Transmission Date: 20240109
  Serious: Yes (Hospitalization)
  Sender: FDA-Public Use
  Company Number: US-Eisai-EC-2023-154702

PATIENT
  Age: 19 Year
  Sex: Male

DRUGS (3)
  1. LENVIMA [Suspect]
     Active Substance: LENVATINIB
     Indication: Hepatic neoplasm
     Route: 048
  2. LENVIMA [Suspect]
     Active Substance: LENVATINIB
     Indication: Cholangiocarcinoma
     Route: 048
     Dates: start: 202302
  3. LENVIMA [Suspect]
     Active Substance: LENVATINIB
     Dosage: MISSED 4 DAYS DUE TO HOSPITALIZATION
     Route: 048
     Dates: start: 2023, end: 202311

REACTIONS (2)
  - Hypertension [Unknown]
  - Renal disorder [Unknown]

NARRATIVE: CASE EVENT DATE: 20231101
